FAERS Safety Report 19491272 (Version 1)
Quarter: 2021Q3

REPORT INFORMATION
  Report Type: Spontaneous
  Country: KR (occurrence: KR)
  Receive Date: 20210705
  Receipt Date: 20210705
  Transmission Date: 20211014
  Serious: Yes (Other)
  Sender: FDA-Public Use
  Company Number: KR-STRIDES ARCOLAB LIMITED-2021SP006966

PATIENT
  Age: 71 Year
  Sex: Male
  Weight: 55 kg

DRUGS (14)
  1. ROCURONIUM [Interacting]
     Active Substance: ROCURONIUM BROMIDE
     Dosage: 5 MILLIGRAM, INJECTED THEN FOLLOWED BY A CONTINUOUS
  2. ROCURONIUM [Interacting]
     Active Substance: ROCURONIUM BROMIDE
     Dosage: 50 MILLIGRAM, (0.9 MG/KG) OF BOLUS INJECTION
  3. PROPOFOL. [Interacting]
     Active Substance: PROPOFOL
     Indication: GENERAL ANAESTHESIA
     Dosage: UNK
     Route: 042
  4. QUETIAPINE. [Concomitant]
     Active Substance: QUETIAPINE
     Indication: PRODUCT USED FOR UNKNOWN INDICATION
     Dosage: 25 MILLIGRAM
     Route: 065
  5. SEVOFLURANE. [Concomitant]
     Active Substance: SEVOFLURANE
     Indication: ANAESTHESIA
     Dosage: UNK
     Route: 065
  6. REMIFENTANIL [Interacting]
     Active Substance: REMIFENTANIL
     Indication: GENERAL ANAESTHESIA
     Dosage: UNK
     Route: 065
  7. ROCURONIUM [Interacting]
     Active Substance: ROCURONIUM BROMIDE
     Dosage: 60 MILLIGRAM
     Route: 065
  8. PROPOFOL. [Interacting]
     Active Substance: PROPOFOL
     Dosage: UNK
     Route: 042
  9. DONEPEZIL. [Suspect]
     Active Substance: DONEPEZIL
     Indication: DEMENTIA
     Dosage: 5 MILLIGRAM
     Route: 065
  10. REMIFENTANIL [Interacting]
     Active Substance: REMIFENTANIL
     Dosage: UNK
     Route: 042
  11. REMIFENTANIL [Interacting]
     Active Substance: REMIFENTANIL
     Dosage: UNK
     Route: 042
  12. ROCURONIUM [Interacting]
     Active Substance: ROCURONIUM BROMIDE
     Indication: ANAESTHESIA
     Dosage: 50 MILLIGRAM
     Route: 065
  13. ROCURONIUM [Interacting]
     Active Substance: ROCURONIUM BROMIDE
     Dosage: 10 MILLIGRAM, (0.18 MG/KG) BOLUS INJECTION FROM DIFFERENT BATCH PRODUCTS
  14. PREGABALIN. [Concomitant]
     Active Substance: PREGABALIN
     Indication: PRODUCT USED FOR UNKNOWN INDICATION
     Dosage: 75 MILLIGRAM, BID
     Route: 065

REACTIONS (2)
  - Drug interaction [Unknown]
  - Neuromuscular blockade [Recovered/Resolved]
